FAERS Safety Report 21902706 (Version 10)
Quarter: 2024Q1

REPORT INFORMATION
  Report Type: Report from Study
  Country: US (occurrence: US)
  Receive Date: 20230124
  Receipt Date: 20240108
  Transmission Date: 20240409
  Serious: Yes (Other)
  Sender: FDA-Public Use
  Company Number: US-002147023-NVSC2023US011225

PATIENT
  Age: 14 Year
  Sex: Female

DRUGS (6)
  1. ILARIS [Suspect]
     Active Substance: CANAKINUMAB
     Indication: Juvenile idiopathic arthritis
     Dosage: 300 MG, Q4W
     Route: 058
     Dates: start: 20190506
  2. ILARIS [Suspect]
     Active Substance: CANAKINUMAB
     Dosage: 300 MG, Q5W
     Route: 058
     Dates: start: 20191015
  3. ILARIS [Suspect]
     Active Substance: CANAKINUMAB
     Dosage: 300 MG, Q5W (OTHER)
     Route: 058
     Dates: start: 20191021, end: 20230824
  4. ILARIS [Suspect]
     Active Substance: CANAKINUMAB
     Dosage: 300 MG, Q5W
     Route: 058
     Dates: start: 202010
  5. ILARIS [Suspect]
     Active Substance: CANAKINUMAB
     Dosage: 300 MG, Q4W
     Route: 058
  6. ILARIS [Suspect]
     Active Substance: CANAKINUMAB
     Dosage: 300 MG, Q5W
     Route: 058
     Dates: start: 20231004

REACTIONS (9)
  - Juvenile idiopathic arthritis [Recovering/Resolving]
  - Condition aggravated [Recovering/Resolving]
  - Eye disorder [Unknown]
  - Eye inflammation [Unknown]
  - Fatigue [Unknown]
  - Nasal congestion [Unknown]
  - Ear infection [Unknown]
  - Ear pain [Unknown]
  - Inappropriate schedule of product administration [Unknown]

NARRATIVE: CASE EVENT DATE: 20230928
